FAERS Safety Report 13847961 (Version 1)
Quarter: 2017Q3

REPORT INFORMATION
  Report Type: Spontaneous
  Country: US (occurrence: US)
  Receive Date: 20170808
  Receipt Date: 20170808
  Transmission Date: 20171127
  Serious: Yes (Life-Threatening, Other)
  Sender: FDA-Public Use
  Company Number: None

PATIENT
  Age: 39 Year
  Sex: Female
  Weight: 85.5 kg

DRUGS (1)
  1. BUPRENORPHINE AND NALOXONE [Suspect]
     Active Substance: BUPRENORPHINE\NALOXONE
     Indication: DEPENDENCE
     Dosage: ?          QUANTITY:90 TABLET(S);?
     Route: 060

REACTIONS (16)
  - Therapy change [None]
  - Drug ineffective [None]
  - Hot flush [None]
  - Withdrawal syndrome [None]
  - Economic problem [None]
  - Product substitution issue [None]
  - Blood pressure increased [None]
  - Loss of employment [None]
  - Diarrhoea [None]
  - Crying [None]
  - Fear [None]
  - Dependence [None]
  - Seizure [None]
  - Feeling abnormal [None]
  - Sleep disorder [None]
  - Pupillary light reflex tests abnormal [None]

NARRATIVE: CASE EVENT DATE: 20170808
